FAERS Safety Report 8448918-7 (Version None)
Quarter: 2012Q2

REPORT INFORMATION
  Report Type: 
  Country: None (occurrence: None)
  Receive Date: 20120619
  Receipt Date: 20120612
  Transmission Date: 20120825
  Serious: Yes (Hospitalization)
  Sender: FDA-Public Use
  Company Number: JP-GLAXOSMITHKLINE-B0782252A

PATIENT
  Sex: Female

DRUGS (4)
  1. PAXIL [Concomitant]
     Indication: DEPRESSION
     Dosage: 40MG PER DAY
     Route: 048
     Dates: start: 20050209
  2. LITHIUM CARBONATE [Concomitant]
     Indication: BIPOLAR I DISORDER
     Dosage: 400MG PER DAY
     Route: 048
     Dates: start: 20050406
  3. LAMICTAL [Suspect]
     Indication: BIPOLAR DISORDER
     Dosage: 25MG PER DAY
     Route: 048
     Dates: start: 20120202, end: 20120212
  4. ZOLPIDEM [Concomitant]
     Indication: INSOMNIA
     Dosage: 10MG PER DAY
     Route: 048
     Dates: start: 20050118

REACTIONS (4)
  - PRURITUS GENERALISED [None]
  - PIGMENTATION DISORDER [None]
  - DRUG ERUPTION [None]
  - RASH GENERALISED [None]
